FAERS Safety Report 9596550 (Version 4)
Quarter: 2014Q1

REPORT INFORMATION
  Report Type: Report from Study
  Country: HR (occurrence: HR)
  Receive Date: 20131004
  Receipt Date: 20140207
  Transmission Date: 20141002
  Serious: Yes (Death, Other)
  Sender: FDA-Public Use
  Company Number: HR-TAKEDA-TPA2013A07020

PATIENT
  Sex: 0

DRUGS (13)
  1. FEBUXOSTAT [Suspect]
     Indication: TUMOUR LYSIS SYNDROME
     Dosage: 120 MG, QD
     Route: 048
     Dates: start: 20130704, end: 20130710
  2. IFOSFAMIDE [Concomitant]
     Indication: CHEMOTHERAPY
     Dosage: 120 MG, QD
     Route: 048
     Dates: start: 20130706, end: 20130708
  3. CARBOPLATIN [Concomitant]
     Indication: CHEMOTHERAPY
     Dosage: UNK
     Dates: start: 20130706, end: 20130708
  4. ETOPOSIDE [Concomitant]
     Indication: CHEMOTHERAPY
     Dosage: UNK
     Dates: start: 20130706, end: 20130708
  5. IBUPROFEN [Concomitant]
     Indication: PAIN
     Dosage: 400 MG, PRN
     Route: 048
     Dates: start: 20120101
  6. SOLU-MEDROL [Concomitant]
     Indication: LYMPHOMA
     Dosage: 100 MG, QD
     Route: 042
     Dates: start: 20130704, end: 20130708
  7. PEPTORAN [Concomitant]
     Indication: GASTRITIS PROPHYLAXIS
     Dosage: 150 MG, BID
     Route: 048
     Dates: start: 20130704
  8. LASIX [Concomitant]
     Indication: PROPHYLAXIS
     Dosage: 20 MG, QD
     Route: 042
     Dates: start: 20130704, end: 20130709
  9. KYTRIL [Concomitant]
     Indication: PROPHYLAXIS OF NAUSEA AND VOMITING
     Dosage: 3 MG, BID
     Route: 042
     Dates: start: 20130706, end: 20130709
  10. ACTRAPID [Concomitant]
     Indication: DIABETES MELLITUS
     Dosage: 8 IU, PRN
     Route: 058
     Dates: start: 20130707
  11. MEDROL [Concomitant]
     Indication: LYMPHOMA
     Dosage: 32 MG, QD
     Route: 048
     Dates: start: 20130708, end: 20130710
  12. MEDROL [Concomitant]
     Dosage: 16 MG, QD
     Dates: start: 20130710
  13. NEULASTA [Concomitant]
     Indication: PROPHYLAXIS
     Dosage: 0.6 ML, QD
     Route: 058
     Dates: start: 20130709, end: 20130709

REACTIONS (3)
  - Febrile neutropenia [Fatal]
  - Pneumonia [Fatal]
  - Respiratory failure [Fatal]
